FAERS Safety Report 13179503 (Version 2)
Quarter: 2017Q2

REPORT INFORMATION
  Report Type: Spontaneous
  Country: DE (occurrence: DE)
  Receive Date: 20170202
  Receipt Date: 20170420
  Transmission Date: 20170830
  Serious: Yes (Other)
  Sender: FDA-Public Use
  Company Number: DE-IPSEN BIOPHARMACEUTICALS, INC.-2017-00727

PATIENT
  Age: 66 Year
  Sex: Male
  Weight: 82 kg

DRUGS (2)
  1. SOMATULINE [Suspect]
     Active Substance: LANREOTIDE ACETATE
     Indication: NEUROENDOCRINE TUMOUR
     Dosage: 60 MG
     Route: 058
     Dates: start: 20161122, end: 20161122
  2. SOMATULINE [Suspect]
     Active Substance: LANREOTIDE ACETATE
     Indication: METASTASES TO LIVER
     Dosage: 120 MG
     Route: 030
     Dates: start: 20161215

REACTIONS (31)
  - Tremor [Recovered/Resolved]
  - Hyperhidrosis [Recovered/Resolved]
  - Hypoglycaemia [Recovered/Resolved]
  - Abdominal pain upper [Recovered/Resolved]
  - Lethargy [Unknown]
  - Hypoglycaemia [Recovered/Resolved]
  - Dizziness [Recovered/Resolved]
  - Anorectal discomfort [Unknown]
  - Dyschezia [Unknown]
  - Fatigue [Unknown]
  - Retching [Unknown]
  - Disturbance in attention [Recovered/Resolved]
  - Tremor [Recovered/Resolved]
  - Abnormal faeces [Unknown]
  - Disturbance in attention [Recovered/Resolved]
  - Drug administered at inappropriate site [Unknown]
  - Product use issue [Unknown]
  - Tremor [Recovered/Resolved]
  - Hyperhidrosis [Recovered/Resolved]
  - Frequent bowel movements [Recovered/Resolved]
  - Discomfort [Unknown]
  - Dyspepsia [Unknown]
  - Nausea [Unknown]
  - Hyperhidrosis [Recovered/Resolved]
  - Injection site induration [Recovering/Resolving]
  - Injection site pruritus [Unknown]
  - Hypoglycaemia [Recovered/Resolved]
  - Faeces soft [Recovered/Resolved]
  - Faeces discoloured [Recovered/Resolved]
  - Libido decreased [Unknown]
  - Asthenia [Recovered/Resolved]

NARRATIVE: CASE EVENT DATE: 2016
